FAERS Safety Report 7443524-5 (Version None)
Quarter: 2011Q2

REPORT INFORMATION
  Report Type: 
  Country: None (occurrence: None)
  Receive Date: 20110428
  Receipt Date: 20101230
  Transmission Date: 20111010
  Serious: Yes (Life-Threatening, Other)
  Sender: FDA-Public Use
  Company Number: US-BAYER-201029771NA

PATIENT
  Age: 23 Year
  Sex: Female
  Weight: 52.154 kg

DRUGS (9)
  1. MULTI-VITAMIN [Concomitant]
     Dosage: UNK
     Dates: start: 20060101, end: 20070101
  2. OXYCODONE HCL [Concomitant]
  3. ETODOLAC [Concomitant]
  4. YASMIN [Suspect]
     Indication: DYSMENORRHOEA
  5. SULFAMETHOXAZOLE [Concomitant]
  6. YAZ [Suspect]
     Route: 048
  7. UNCODEABLE ^UNCLASSIFIABLE^ [Concomitant]
     Indication: ASTHMA
     Dosage: UNK
     Dates: start: 19970101, end: 20040101
  8. HYDROCODONE [HYDROCODONE] [Concomitant]
  9. YASMIN [Suspect]
     Indication: CONTRACEPTION
     Dosage: UNK UNK, UNK
     Route: 048
     Dates: start: 20070301, end: 20071201

REACTIONS (5)
  - CHOLELITHIASIS [None]
  - GALLBLADDER DISORDER [None]
  - CHOLECYSTITIS [None]
  - DEEP VEIN THROMBOSIS [None]
  - ABDOMINAL PAIN [None]
